FAERS Safety Report 15328949 (Version 2)
Quarter: 2018Q4

REPORT INFORMATION
  Report Type: Report from Study
  Country: CA (occurrence: CA)
  Receive Date: 20180829
  Receipt Date: 20181010
  Transmission Date: 20190204
  Serious: Yes (Other)
  Sender: FDA-Public Use
  Company Number: CA-ROCHE-2176028

PATIENT
  Age: 69 Year
  Sex: Female

DRUGS (15)
  1. BENADRYL [Concomitant]
     Active Substance: DIPHENHYDRAMINE HYDROCHLORIDE
     Indication: PREMEDICATION
     Route: 048
  2. METHYLPREDNISOLONE. [Concomitant]
     Active Substance: METHYLPREDNISOLONE
     Indication: PREMEDICATION
     Route: 042
  3. TELMISARTAN. [Concomitant]
     Active Substance: TELMISARTAN
  4. VENTOLIN [Concomitant]
     Active Substance: ALBUTEROL SULFATE
  5. RABEPRAZOLE [Concomitant]
     Active Substance: RABEPRAZOLE
  6. LASIX [Concomitant]
     Active Substance: FUROSEMIDE
  7. LIPITOR [Concomitant]
     Active Substance: ATORVASTATIN CALCIUM
  8. RITUXAN [Suspect]
     Active Substance: RITUXIMAB
     Indication: RHEUMATOID ARTHRITIS
     Route: 042
     Dates: start: 20180131
  9. ACETAMINOPHEN. [Concomitant]
     Active Substance: ACETAMINOPHEN
     Indication: PREMEDICATION
     Route: 048
  10. PREDNISONE. [Concomitant]
     Active Substance: PREDNISONE
  11. CETIRIZINE [Concomitant]
     Active Substance: CETIRIZINE HYDROCHLORIDE
  12. SYMBICORT [Concomitant]
     Active Substance: BUDESONIDE\FORMOTEROL FUMARATE DIHYDRATE
  13. RITUXAN [Suspect]
     Active Substance: RITUXIMAB
     Indication: URTICARIAL VASCULITIS
     Dosage: INFUSION NO. 4
     Route: 042
     Dates: start: 20180827
  14. MYCOPHENOLATE [Concomitant]
     Active Substance: MYCOPHENOLIC ACID
  15. HCTZ [Concomitant]
     Active Substance: HYDROCHLOROTHIAZIDE

REACTIONS (9)
  - Shock [Unknown]
  - Pruritus [Not Recovered/Not Resolved]
  - Agitation [Not Recovered/Not Resolved]
  - Seizure [Not Recovered/Not Resolved]
  - Infusion related reaction [Unknown]
  - Blood pressure decreased [Unknown]
  - Bronchospasm [Not Recovered/Not Resolved]
  - Hyperhidrosis [Unknown]
  - Urticaria [Unknown]

NARRATIVE: CASE EVENT DATE: 20180215
